FAERS Safety Report 7733537-8 (Version None)
Quarter: 2011Q3

REPORT INFORMATION
  Report Type: 
  Country: None (occurrence: None)
  Receive Date: 20110902
  Receipt Date: 20110902
  Transmission Date: 20111222
  Serious: No
  Sender: FDA-Public Use
  Company Number: None

PATIENT
  Age: 63 Year
  Sex: Female
  Weight: 65.7716 kg

DRUGS (1)
  1. SOLU-MEDROL [Suspect]
     Indication: BRONCHITIS
     Dosage: 60MG IV EVERY 6 HRS IV
     Route: 042
     Dates: start: 20110714, end: 20110715

REACTIONS (3)
  - BACK PAIN [None]
  - BLOOD GLUCOSE INCREASED [None]
  - RENAL PAIN [None]
